FAERS Safety Report 15229135 (Version 1)
Quarter: 2018Q3

REPORT INFORMATION
  Report Type: Spontaneous
  Country: US (occurrence: US)
  Receive Date: 20180707
  Receipt Date: 20180707
  Transmission Date: 20181010
  Serious: Yes (Other)
  Sender: FDA-Public Use
  Company Number: None

PATIENT
  Age: 33 Year
  Sex: Female
  Weight: 60.33 kg

DRUGS (1)
  1. MIRENA [Suspect]
     Active Substance: LEVONORGESTREL

REACTIONS (18)
  - Nervousness [None]
  - Mood swings [None]
  - Insomnia [None]
  - Depression [None]
  - Fatigue [None]
  - Breast pain [None]
  - Headache [None]
  - Dyspnoea [None]
  - Hypotension [None]
  - Mental disorder [None]
  - Tremor [None]
  - Dehydration [None]
  - Fibrocystic breast disease [None]
  - Loss of consciousness [None]
  - Chest discomfort [None]
  - Loss of personal independence in daily activities [None]
  - Anxiety [None]
  - Dizziness [None]

NARRATIVE: CASE EVENT DATE: 20170901
